FAERS Safety Report 7308336-1 (Version None)
Quarter: 2011Q1

REPORT INFORMATION
  Report Type: 
  Country: None (occurrence: None)
  Receive Date: 20110223
  Receipt Date: 20110217
  Transmission Date: 20110831
  Serious: Yes (Hospitalization)
  Sender: FDA-Public Use
  Company Number: B0695507A

PATIENT
  Sex: Female

DRUGS (4)
  1. GASTER [Concomitant]
  2. MEDROL [Concomitant]
     Route: 048
  3. URSO 250 [Concomitant]
     Route: 048
  4. VALTREX [Suspect]
     Indication: HERPES ZOSTER
     Dosage: 3000MG PER DAY
     Route: 048
     Dates: start: 20110114, end: 20110119

REACTIONS (4)
  - ASTHENIA [None]
  - PLATELET COUNT DECREASED [None]
  - RENAL FAILURE ACUTE [None]
  - URINE OUTPUT DECREASED [None]
